FAERS Safety Report 7058338-8 (Version None)
Quarter: 2010Q4

REPORT INFORMATION
  Report Type: 
  Country: None (occurrence: None)
  Receive Date: 20101022
  Receipt Date: 20101014
  Transmission Date: 20110411
  Serious: No
  Sender: FDA-Public Use
  Company Number: US-PFIZER INC-2010131512

PATIENT
  Age: 37 Year
  Sex: Female
  Weight: 63.039 kg

DRUGS (5)
  1. ZOLOFT [Suspect]
     Indication: ANXIETY
     Dosage: 50 MG, DAILY
     Route: 048
     Dates: start: 20100816
  2. XANAX [Suspect]
     Indication: ANXIETY
     Dosage: 0.25 MG, DAILY
     Route: 048
     Dates: start: 20100816
  3. XANAX [Suspect]
     Dosage: 0.25 MG, 2X/WEEK
     Route: 048
  4. XANAX [Suspect]
     Dosage: 0.25 MG, UNK
     Route: 048
  5. CALCIUM [Concomitant]
     Dosage: UNK, DAILY
     Route: 048

REACTIONS (1)
  - BLEPHAROSPASM [None]
